FAERS Safety Report 10398976 (Version 1)
Quarter: 2014Q3

REPORT INFORMATION
  Report Type: Spontaneous
  Country: FI (occurrence: FI)
  Receive Date: 20140821
  Receipt Date: 20140821
  Transmission Date: 20150326
  Serious: Yes (Death, Other)
  Sender: FDA-Public Use
  Company Number: FI-ACTAVIS-2014-18532

PATIENT
  Age: 60 Year
  Sex: Female

DRUGS (5)
  1. GRANISETRON [Concomitant]
     Active Substance: GRANISETRON
     Indication: ANTIEMETIC SUPPORTIVE CARE
     Dosage: 3 MG, DAILY
     Route: 017
  2. SENDOXAN [Suspect]
     Active Substance: CYCLOPHOSPHAMIDE
     Indication: CHEMOTHERAPY
     Dosage: 1100 MG, DAILY
     Route: 017
     Dates: start: 20140414
  3. FLUOROURACIL ACCORD [Suspect]
     Active Substance: FLUOROURACIL
     Indication: CHEMOTHERAPY
     Dosage: 1100 MG, DAILY
     Route: 017
     Dates: start: 20140414
  4. EPIRUBICIN ACTAVIS [Suspect]
     Active Substance: EPIRUBICIN
     Indication: CHEMOTHERAPY
     Dosage: 140 MG, DAILY
     Route: 017
     Dates: start: 20140414
  5. ORADEXON                           /00016001/ [Concomitant]
     Indication: ANTIEMETIC SUPPORTIVE CARE
     Dosage: 10 MG, DAILY
     Route: 017

REACTIONS (18)
  - Oxygen saturation abnormal [Fatal]
  - Pulmonary alveolar haemorrhage [Unknown]
  - Malaise [Fatal]
  - Pulmonary toxicity [Fatal]
  - Diffuse alveolar damage [Unknown]
  - Death [Fatal]
  - Pyrexia [Fatal]
  - Fatigue [Unknown]
  - Acute respiratory distress syndrome [Fatal]
  - Lung consolidation [Fatal]
  - Cough [Fatal]
  - Dyspnoea [Unknown]
  - Oropharyngeal pain [Unknown]
  - Vomiting [Fatal]
  - Computerised tomogram thorax abnormal [Fatal]
  - Acute respiratory failure [Fatal]
  - Productive cough [Unknown]
  - Hypoxia [Unknown]

NARRATIVE: CASE EVENT DATE: 20140419
